FAERS Safety Report 9454475 (Version 1)
Quarter: 2013Q3

REPORT INFORMATION
  Report Type: Spontaneous
  Country: US (occurrence: US)
  Receive Date: 20130812
  Receipt Date: 20130812
  Transmission Date: 20140515
  Serious: No
  Sender: FDA-Public Use
  Company Number: US-B.I. PHARMACEUTICALS,INC./RIDGEFIELD-2013-BI-23969BP

PATIENT
  Sex: Female

DRUGS (7)
  1. PRADAXA [Suspect]
     Indication: ATRIAL FIBRILLATION
     Dosage: 150 MG
     Route: 048
     Dates: start: 20130723, end: 20130802
  2. TYLENOL [Concomitant]
     Indication: TENDONITIS
  3. BYSTOLIC [Concomitant]
     Indication: HYPERTENSION
     Dosage: 5 MG
     Route: 048
  4. GENERIC MELOXICAM [Concomitant]
     Indication: TENDONITIS
     Dosage: 7.5 MG
     Route: 048
     Dates: start: 20130723, end: 20130802
  5. SIMVASTATIN [Concomitant]
     Indication: HYPERLIPIDAEMIA
     Route: 048
  6. OMEPRAZOLE [Concomitant]
     Indication: GASTROOESOPHAGEAL REFLUX DISEASE
     Dosage: 20 MG
     Route: 048
  7. TRAMADOL [Concomitant]
     Indication: TENDONITIS

REACTIONS (3)
  - Influenza like illness [Unknown]
  - Dyspepsia [Unknown]
  - Vaginal haemorrhage [Unknown]
